FAERS Safety Report 4433062-6 (Version None)
Quarter: 2004Q3

REPORT INFORMATION
  Report Type: 
  Country: None (occurrence: None)
  Receive Date: 20040823
  Receipt Date: 20040811
  Transmission Date: 20050211
  Serious: No
  Sender: FDA-Public Use
  Company Number: 2004UW17170

PATIENT

DRUGS (1)
  1. NEXIUM [Suspect]
     Dosage: 40 MG QD PO

REACTIONS (2)
  - GLOMERULONEPHRITIS [None]
  - PROTEINURIA [None]
